FAERS Safety Report 13354182 (Version 1)
Quarter: 2017Q1

REPORT INFORMATION
  Report Type: Spontaneous
  Country: JP (occurrence: JP)
  Receive Date: 20170321
  Receipt Date: 20170321
  Transmission Date: 20170429
  Serious: Yes (Death, Other)
  Sender: FDA-Public Use
  Company Number: JP-CLINIGEN GROUP PLC/ CLINIGEN HEALTHCARE LTD-JP-CLGN-17-00108

PATIENT
  Age: 51 Year
  Sex: Male

DRUGS (6)
  1. GANCICLOVIR. [Concomitant]
     Active Substance: GANCICLOVIR
     Indication: CYTOMEGALOVIRUS INFECTION
  2. CHEMOTHERAPY [Concomitant]
     Active Substance: UNSPECIFIED INGREDIENT
     Indication: ADULT T-CELL LYMPHOMA/LEUKAEMIA
  3. GANCICLOVIR. [Concomitant]
     Active Substance: GANCICLOVIR
     Indication: ENCEPHALITIS CYTOMEGALOVIRUS
  4. FOSCARNET?SODIUM [Suspect]
     Active Substance: FOSCARNET SODIUM
     Indication: CYTOMEGALOVIRUS INFECTION
     Route: 041
  5. FOSCARNET?SODIUM [Suspect]
     Active Substance: FOSCARNET SODIUM
     Indication: ENCEPHALITIS CYTOMEGALOVIRUS
  6. MOGAMULIZUMAB [Concomitant]
     Active Substance: MOGAMULIZUMAB
     Indication: ADULT T-CELL LYMPHOMA/LEUKAEMIA

REACTIONS (6)
  - Thrombotic microangiopathy [Unknown]
  - Hepatic failure [Fatal]
  - Renal disorder [Unknown]
  - Off label use [Unknown]
  - Red blood cell schistocytes present [Unknown]
  - Adenoviral hepatitis [Unknown]
